FAERS Safety Report 6920132-3 (Version None)
Quarter: 2010Q3

REPORT INFORMATION
  Report Type: 
  Country: None (occurrence: None)
  Receive Date: 20100730
  Receipt Date: 20100504
  Transmission Date: 20110219
  Serious: Yes (Death)
  Sender: FDA-Public Use
  Company Number: OMPQ-PR-1005S-0291

PATIENT
  Age: 57 Year
  Sex: Female

DRUGS (5)
  1. OMNIPAQUE 140 [Suspect]
     Indication: HEPATIC ENCEPHALOPATHY
     Dosage: 135 ML, SINGLE DOSE, I.V.
     Route: 042
     Dates: start: 20100208, end: 20100208
  2. INSULIN SOLUBLE [Concomitant]
  3. CIPRO [Concomitant]
  4. FLAGYL [Concomitant]
  5. LACTULOSE [Concomitant]

REACTIONS (1)
  - RENAL FAILURE ACUTE [None]
